FAERS Safety Report 19108189 (Version 1)
Quarter: 2021Q2

REPORT INFORMATION
  Report Type: Report from Study
  Country: CA (occurrence: CA)
  Receive Date: 20210408
  Receipt Date: 20210408
  Transmission Date: 20210717
  Serious: Yes (Hospitalization)
  Sender: FDA-Public Use
  Company Number: CA-TAKEDA-2020TUS021173

PATIENT
  Age: 80 Year
  Sex: Female

DRUGS (5)
  1. VEDOLIZUMAB [Suspect]
     Active Substance: VEDOLIZUMAB
     Indication: CROHN^S DISEASE
     Dosage: 300 MILLIGRAM
     Route: 042
     Dates: start: 20200417
  2. VEDOLIZUMAB [Suspect]
     Active Substance: VEDOLIZUMAB
     Dosage: 300 MILLIGRAM
     Route: 042
  3. VEDOLIZUMAB [Suspect]
     Active Substance: VEDOLIZUMAB
     Dosage: 300 MILLIGRAM
     Route: 042
  4. VEDOLIZUMAB [Suspect]
     Active Substance: VEDOLIZUMAB
     Dosage: 300 MILLIGRAM
     Route: 042
  5. PREDNISONE. [Concomitant]
     Active Substance: PREDNISONE
     Dosage: UNK

REACTIONS (23)
  - Swelling [Unknown]
  - Abnormal faeces [Not Recovered/Not Resolved]
  - Eye irritation [Recovered/Resolved]
  - Dysphonia [Unknown]
  - Ear pain [Unknown]
  - Pain in extremity [Unknown]
  - Hypophagia [Unknown]
  - Abdominal pain [Not Recovered/Not Resolved]
  - Peripheral swelling [Unknown]
  - Memory impairment [Unknown]
  - Amnesia [Recovered/Resolved]
  - Frequent bowel movements [Unknown]
  - Coordination abnormal [Unknown]
  - Abdominal pain upper [Unknown]
  - Dry throat [Unknown]
  - Oropharyngeal pain [Unknown]
  - Intestinal polyp [Unknown]
  - Feeling hot [Recovered/Resolved]
  - Head discomfort [Unknown]
  - Headache [Unknown]
  - Burning sensation [Recovered/Resolved]
  - Gait disturbance [Recovered/Resolved]
  - Myalgia [Unknown]
